FAERS Safety Report 18616053 (Version 1)
Quarter: 2020Q4

REPORT INFORMATION
  Report Type: Spontaneous
  Country: ES (occurrence: ES)
  Receive Date: 20201214
  Receipt Date: 20201214
  Transmission Date: 20210114
  Serious: Yes (Other)
  Sender: FDA-Public Use
  Company Number: NVSC2020ES326311

PATIENT
  Age: 53 Year
  Sex: Female

DRUGS (3)
  1. CLADRIBINE. [Suspect]
     Active Substance: CLADRIBINE
     Dosage: SECOND CYCLE THERAPY
     Route: 065
     Dates: start: 202001
  2. GABAPENTIN. [Suspect]
     Active Substance: GABAPENTIN
     Indication: NEURALGIA
     Dosage: UNK
     Route: 065
  3. CLADRIBINE. [Suspect]
     Active Substance: CLADRIBINE
     Indication: MULTIPLE SCLEROSIS
     Dosage: FIRST CYCLE THERAPY
     Route: 065
     Dates: start: 201912

REACTIONS (5)
  - Lymphopenia [Recovered/Resolved]
  - Neuralgia [Unknown]
  - Neutropenia [Recovered/Resolved]
  - Asthenia [Unknown]
  - Leukopenia [Unknown]

NARRATIVE: CASE EVENT DATE: 2020
